FAERS Safety Report 7494480-5 (Version None)
Quarter: 2011Q2

REPORT INFORMATION
  Report Type: 
  Country: None (occurrence: None)
  Receive Date: 20110520
  Receipt Date: 20110506
  Transmission Date: 20111010
  Serious: Yes (Death, Hospitalization, Other)
  Sender: FDA-Public Use
  Company Number: GB-JNJFOC-20110503668

PATIENT
  Sex: Female
  Weight: 52 kg

DRUGS (11)
  1. VISCOTEARS [Concomitant]
     Route: 061
  2. LACRI-LUBE [Concomitant]
     Route: 061
     Dates: start: 20110112
  3. CALCICHEW D3 FORTE [Concomitant]
     Route: 048
     Dates: start: 20110112
  4. ACETAMINOPHEN [Concomitant]
     Route: 048
     Dates: start: 20110112
  5. MORPHINE SULFATE [Concomitant]
     Route: 048
     Dates: start: 20110112
  6. OMEPRAZOLE [Concomitant]
     Route: 048
     Dates: start: 20110112
  7. REMICADE [Suspect]
     Indication: RHEUMATOID ARTHRITIS
     Route: 042
     Dates: start: 20050515, end: 20081015
  8. MIRTAZAPINE [Concomitant]
     Route: 048
     Dates: start: 20110112
  9. PREDNISOLONE [Concomitant]
     Route: 048
     Dates: start: 20110112
  10. FOLIC ACID [Concomitant]
     Route: 048
     Dates: start: 20110112
  11. METHOTREXATE [Concomitant]
     Dates: start: 20090415

REACTIONS (5)
  - MYOCARDIAL ISCHAEMIA [None]
  - METASTATIC NEOPLASM [None]
  - BLOOD CREATININE INCREASED [None]
  - GASTROINTESTINAL HAEMORRHAGE [None]
  - CARDIAC FAILURE CONGESTIVE [None]
